FAERS Safety Report 9376937 (Version 1)
Quarter: 2013Q3

REPORT INFORMATION
  Report Type: Spontaneous
  Country: FR (occurrence: FR)
  Receive Date: 20130701
  Receipt Date: 20130701
  Transmission Date: 20140515
  Serious: Yes (Hospitalization)
  Sender: FDA-Public Use
  Company Number: PHHY2013FR066882

PATIENT
  Age: 81 Year
  Sex: Female

DRUGS (3)
  1. EXFORGE [Suspect]
     Indication: HYPERTENSION
     Route: 048
     Dates: start: 20090401, end: 20090416
  2. PLAVIX [Concomitant]
  3. FUROSEMIDE [Concomitant]

REACTIONS (2)
  - Skin ulcer [Recovering/Resolving]
  - Vascular purpura [Recovering/Resolving]
